FAERS Safety Report 6948181-X (Version None)
Quarter: 2010Q3

REPORT INFORMATION
  Report Type: 
  Country: None (occurrence: None)
  Receive Date: 20100828
  Receipt Date: 20091020
  Transmission Date: 20110219
  Serious: No
  Sender: FDA-Public Use
  Company Number: US-ABBOTT-09P-163-0604499-00

PATIENT
  Sex: Male
  Weight: 84.444 kg

DRUGS (10)
  1. NIASPAN [Suspect]
     Indication: ATHEROSCLEROSIS PROPHYLAXIS
     Dates: start: 20091016, end: 20091019
  2. ASPIRIN [Concomitant]
     Indication: PRODUCT USED FOR UNKNOWN INDICATION
  3. GIBURIDE [Concomitant]
     Indication: DIABETES MELLITUS
  4. LEVAMIR [Concomitant]
     Indication: PRODUCT USED FOR UNKNOWN INDICATION
     Dosage: FLEX PEN
  5. LASIX [Concomitant]
     Indication: PRODUCT USED FOR UNKNOWN INDICATION
  6. METOPROLOL [Concomitant]
     Indication: HYPERTENSION
  7. DIOVAN [Concomitant]
     Indication: HYPERTENSION
  8. PLAVIX [Concomitant]
     Indication: PRODUCT USED FOR UNKNOWN INDICATION
  9. ZOCOR [Concomitant]
     Indication: PRODUCT USED FOR UNKNOWN INDICATION
  10. AMBIEN [Concomitant]
     Indication: INSOMNIA

REACTIONS (5)
  - CHILLS [None]
  - DISORIENTATION [None]
  - DIZZINESS [None]
  - HEADACHE [None]
  - HYPERHIDROSIS [None]
